FAERS Safety Report 7802893-4 (Version None)
Quarter: 2011Q4

REPORT INFORMATION
  Report Type: 
  Country: None (occurrence: None)
  Receive Date: 20111007
  Receipt Date: 20110927
  Transmission Date: 20120403
  Serious: Yes (Death, Hospitalization)
  Sender: FDA-Public Use
  Company Number: US-NOVOPROD-335951

PATIENT

DRUGS (2)
  1. NOVOLOG MIX 70/30 [Suspect]
     Indication: TYPE 2 DIABETES MELLITUS
     Dosage: UNKNOWN, TID
     Route: 058
     Dates: start: 20110701
  2. LISINOPRIL [Concomitant]
     Indication: HYPERTENSION

REACTIONS (3)
  - WEIGHT DECREASED [None]
  - SUDDEN DEATH [None]
  - DIARRHOEA [None]
